FAERS Safety Report 15432010 (Version 1)
Quarter: 2018Q3

REPORT INFORMATION
  Report Type: Spontaneous
  Country: US (occurrence: US)
  Receive Date: 20180926
  Receipt Date: 20180926
  Transmission Date: 20181010
  Serious: No
  Sender: FDA-Public Use
  Company Number: US-LPDUSPRD-20171409

PATIENT

DRUGS (1)
  1. TRANEXAMIC ACID INJECTION(0517?0960?01) [Suspect]
     Active Substance: TRANEXAMIC ACID
     Dosage: UNKNOWN
     Route: 065

REACTIONS (1)
  - Extravasation [Unknown]
